FAERS Safety Report 18467262 (Version 1)
Quarter: 2020Q4

REPORT INFORMATION
  Report Type: Spontaneous
  Country: US (occurrence: US)
  Receive Date: 20201105
  Receipt Date: 20201105
  Transmission Date: 20210114
  Serious: Yes (Hospitalization, Other)
  Sender: FDA-Public Use
  Company Number: US-MYLANLABS-2020M1092013

PATIENT
  Age: 1 Day
  Sex: Male

DRUGS (2)
  1. ACETAZOLAMIDE. [Suspect]
     Active Substance: ACETAZOLAMIDE
     Indication: IDIOPATHIC INTRACRANIAL HYPERTENSION
     Dosage: 1000MG/DAY DIVIDED TWO TIMES A DAY
     Route: 064
  2. FIORICET [Suspect]
     Active Substance: ACETAMINOPHEN\BUTALBITAL\CAFFEINE
     Indication: DEPRESSION
     Dosage: TAKEN INTERMITTENTLY THROUGHOUT THE PREGNANCY
     Route: 064

REACTIONS (4)
  - Metabolic acidosis [Recovered/Resolved]
  - Respiratory distress [Recovered/Resolved]
  - Autism spectrum disorder [Unknown]
  - Foetal exposure during pregnancy [Recovered/Resolved]
